FAERS Safety Report 10170889 (Version 3)
Quarter: 2014Q2

REPORT INFORMATION
  Report Type: Spontaneous
  Country: US (occurrence: US)
  Receive Date: 20140514
  Receipt Date: 20140626
  Transmission Date: 20141212
  Serious: No
  Sender: FDA-Public Use
  Company Number: US-009507513-1405USA004531

PATIENT
  Age: 64 Year
  Sex: Female
  Weight: 73 kg

DRUGS (6)
  1. NOXAFIL [Suspect]
     Dosage: 400MG/10ML, BID
  2. NOXAFIL [Suspect]
     Indication: COCCIDIOIDOMYCOSIS
     Dosage: TOTAL DAILY DOSE: 400 MG, UNK
     Route: 048
     Dates: start: 20140226, end: 20140416
  3. LISINOPRIL [Concomitant]
     Indication: HYPERTENSION
     Dosage: TOTAL DAILY DOSE: 10MG
     Route: 048
     Dates: start: 2013
  4. METFORMIN [Concomitant]
     Indication: TYPE 2 DIABETES MELLITUS
     Dosage: TOTAL DAILY DOSE: 1000MG; BID
     Route: 048
     Dates: start: 2013
  5. NORVASC [Concomitant]
     Indication: HYPERTENSION
     Dosage: TOTAL DAILY DOSE: 10MG; QD
     Route: 048
     Dates: start: 2013
  6. MAG OXIDE [Concomitant]
     Indication: HYPOMAGNESAEMIA
     Dosage: UNK, BID
     Route: 048
     Dates: start: 2013

REACTIONS (12)
  - Blood sodium decreased [Recovered/Resolved]
  - Hypokalaemia [Recovered/Resolved]
  - Blood glucose increased [Not Recovered/Not Resolved]
  - Blood urea increased [Recovered/Resolved]
  - Blood urea increased [Recovered/Resolved]
  - Blood alkaline phosphatase decreased [Recovered/Resolved]
  - Alanine aminotransferase decreased [Recovered/Resolved]
  - Aspartate aminotransferase decreased [Recovered/Resolved]
  - Blood magnesium decreased [Recovered/Resolved]
  - Blood acid phosphatase decreased [Recovered/Resolved]
  - Protein total increased [Recovered/Resolved]
  - Protein total increased [Recovered/Resolved]
